FAERS Safety Report 4391721-8 (Version None)
Quarter: 2004Q3

REPORT INFORMATION
  Report Type: 
  Country: None (occurrence: None)
  Receive Date: 20040701
  Receipt Date: 20040623
  Transmission Date: 20050211
  Serious: Yes (Hospitalization, Other)
  Sender: FDA-Public Use
  Company Number: 2004042649

PATIENT
  Sex: Female
  Weight: 61.2356 kg

DRUGS (8)
  1. NEURONTIN [Suspect]
     Indication: PAIN
     Dosage: 2700 MG (900 MG, 3 IN 1 D), ORAL
     Route: 048
  2. NEURONTIN [Suspect]
     Indication: TRIGEMINAL NEURALGIA
     Dosage: 2700 MG (900 MG, 3 IN 1 D), ORAL
     Route: 048
  3. CARBAMAZEPINE [Suspect]
     Indication: PAIN
     Dosage: ORAL
     Route: 048
  4. POTASSIUM CHLORIDE [Concomitant]
  5. SIMVASTATIN [Concomitant]
  6. FUROSEMIDE [Concomitant]
  7. LEVOTHYROXINE SODIUM [Concomitant]
  8. BACLOFEN [Concomitant]

REACTIONS (5)
  - ACCIDENTAL OVERDOSE [None]
  - BALANCE DISORDER [None]
  - MEMORY IMPAIRMENT [None]
  - MOVEMENT DISORDER [None]
  - VISION BLURRED [None]
